FAERS Safety Report 24103861 (Version 3)
Quarter: 2025Q4

REPORT INFORMATION
  Report Type: Spontaneous
  Country: GB (occurrence: GB)
  Receive Date: 20240717
  Receipt Date: 20251024
  Transmission Date: 20260117
  Serious: Yes (Hospitalization)
  Sender: MYLAN
  Company Number: GB-BAXTER-2024BAX010373

PATIENT
  Age: 38 Year
  Sex: Female

DRUGS (38)
  1. TOBRAMYCIN [Suspect]
     Active Substance: TOBRAMYCIN
     Indication: Cystic fibrosis
     Dosage: 340 MILLIGRAM, QD (340 MG ONCE A DAY, AS A DUAL THERAPY ALONGSIDE FOSFOMYCIN)
  2. TOBRAMYCIN [Suspect]
     Active Substance: TOBRAMYCIN
     Indication: Condition aggravated
     Dosage: UNK (2 WEEK COURSE)
     Dates: start: 20240229, end: 20240308
  3. TOBRAMYCIN [Suspect]
     Active Substance: TOBRAMYCIN
     Indication: Infection
     Dosage: 330 MILLIGRAM, QD (2 WEEKS IN TOTAL TO COMPLETE AT HOME)
     Dates: start: 20231223, end: 20240102
  4. TOBRAMYCIN [Suspect]
     Active Substance: TOBRAMYCIN
     Dosage: UNK (2 WEEKS COURSE)
     Dates: start: 20240926, end: 20241008
  5. DEXTROSE [Suspect]
     Active Substance: DEXTROSE MONOHYDRATE
     Indication: Medication dilution
     Dosage: 250 MILLILITER, TID (250 ML THRICE A DAY)
  6. DEXTROSE [Suspect]
     Active Substance: DEXTROSE MONOHYDRATE
     Dosage: 250 MILLILITER, TID (250 ML THRICE A DAY)
  7. DEXTROSE [Suspect]
     Active Substance: DEXTROSE MONOHYDRATE
     Dosage: 250 MILLILITER, TID (250 ML THRICE A DAY)
  8. DEXTROSE [Suspect]
     Active Substance: DEXTROSE MONOHYDRATE
     Dosage: 250 MILLILITER, TID (250 ML THRICE A DAY)
  9. DEXTROSE [Suspect]
     Active Substance: DEXTROSE MONOHYDRATE
     Dosage: 250 MILLILITER, TID (250 ML THRICE A DAY)
  10. DEXTROSE [Suspect]
     Active Substance: DEXTROSE MONOHYDRATE
     Dosage: 250 MILLILITER, TID (250 ML THRICE A DAY)
  11. DEXTROSE [Suspect]
     Active Substance: DEXTROSE MONOHYDRATE
     Dosage: 250 MILLILITER, TID (250 ML THRICE A DAY)
  12. DEXTROSE [Suspect]
     Active Substance: DEXTROSE MONOHYDRATE
     Dosage: 250 MILLILITER, TID (250 ML THRICE A DAY)
  13. DEXTROSE [Suspect]
     Active Substance: DEXTROSE MONOHYDRATE
     Dosage: 250 MILLILITER, TID (250 ML THRICE A DAY)
  14. DEXTROSE [Suspect]
     Active Substance: DEXTROSE MONOHYDRATE
     Dosage: 250 MILLILITER, TID (250 ML THRICE A DAY)
  15. FOSFOMYCIN [Suspect]
     Active Substance: FOSFOMYCIN
     Indication: Cystic fibrosis
     Dosage: 4 GRAM, TID (4 G THRICE A DAY)
     Dates: start: 20231130
  16. FOSFOMYCIN [Suspect]
     Active Substance: FOSFOMYCIN
     Indication: Condition aggravated
     Dosage: 2000 MILLIGRAM, TID (2000 MG THRICE A DAY, AS A DUAL THERAPY ALONGSIDE 340 MG TOBRAMYCIN AND 2 MU COLOMYCIN)
  17. FOSFOMYCIN [Suspect]
     Active Substance: FOSFOMYCIN
     Indication: Infection
     Dosage: 2000 MILLIGRAM, TID (2000 MG THRICE A DAY, AS A DUAL THERAPY ALONGSIDE 2 MU COLOMYCIN)
  18. FOSFOMYCIN [Suspect]
     Active Substance: FOSFOMYCIN
     Dosage: 2000 MILLIGRAM, TID (2000 MG THRICE A DAY, AS A DUAL THERAPY ALONGSIDE 340 MG TOBRAMYCIN AND 2 MU COLOMYCIN)
  19. FOSFOMYCIN [Suspect]
     Active Substance: FOSFOMYCIN
     Dosage: 2000 MILLIGRAM, TID (2000 MG THRICE A DAY, AS A DUAL THERAPY ALONGSIDE 2 MU COLOMYCIN)
  20. FOSFOMYCIN [Suspect]
     Active Substance: FOSFOMYCIN
     Dosage: 2000 MILLIGRAM, TID (2000 MG THRICE A DAY, AS A DUAL THERAPY ALONGSIDE 340 MG TOBRAMYCIN AND 2 MU COLOMYCIN)
  21. FOSFOMYCIN [Suspect]
     Active Substance: FOSFOMYCIN
     Dosage: 2000 MILLIGRAM, TID (2000 MG THRICE A DAY, AS A DUAL THERAPY ALONGSIDE 2 MU COLOMYCI)
  22. FOSFOMYCIN [Suspect]
     Active Substance: FOSFOMYCIN
     Dosage: 2000 MILLIGRAM, TID (2000 MG THRICE A DAY, AS A DUAL THERAPY ALONGSIDE 2 MU COLOMYCIN)
  23. FOSFOMYCIN [Suspect]
     Active Substance: FOSFOMYCIN
     Dosage: 2000 MILLIGRAM, TID (2000 MG THRICE A DAY, AS A DUAL THERAPY ALONGSIDE 340 MG TOBRAMYCIN AND 2 MU COLOMYCIN)
  24. FOSFOMYCIN [Suspect]
     Active Substance: FOSFOMYCIN
     Dosage: 2000 MILLIGRAM, TID (2000 MG THRICE A DAY, AS A DUAL THERAPY ALONGSIDE 2 MU COLOMYCIN)
  25. FOSFOMYCIN [Suspect]
     Active Substance: FOSFOMYCIN
     Dosage: 10 UNITS
  26. FOSFOMYCIN [Suspect]
     Active Substance: FOSFOMYCIN
     Dosage: 7 UNITS
  27. FOSFOMYCIN [Suspect]
     Active Substance: FOSFOMYCIN
     Dosage: 7 UNITS
  28. FOSFOMYCIN [Suspect]
     Active Substance: FOSFOMYCIN
     Dosage: 7 UNITS
  29. FOSFOMYCIN [Suspect]
     Active Substance: FOSFOMYCIN
     Dosage: 9 UNITS
  30. FOSFOMYCIN [Suspect]
     Active Substance: FOSFOMYCIN
     Dosage: 9 UNITS
  31. FOSFOMYCIN [Suspect]
     Active Substance: FOSFOMYCIN
     Dosage: 7 UNITS
  32. FOSFOMYCIN [Suspect]
     Active Substance: FOSFOMYCIN
     Dosage: 7 UNITS
  33. FOSFOMYCIN [Suspect]
     Active Substance: FOSFOMYCIN
     Dosage: 12 GRAM, QD (4 G, TID, (2 WEEKS IN TOTAL TO COMPLETE AT HOME))
     Dates: start: 20231223, end: 20240102
  34. FOSFOMYCIN [Suspect]
     Active Substance: FOSFOMYCIN
     Dosage: UNK (2 WEEKS COURSE)
     Dates: start: 20240926, end: 20241008
  35. FOSFOMYCIN [Suspect]
     Active Substance: FOSFOMYCIN
     Dosage: UNK (2 WEEK COURSE)
     Dates: start: 20240229, end: 20240308
  36. COLISTIMETHATE SODIUM [Suspect]
     Active Substance: COLISTIMETHATE SODIUM
     Indication: Cystic fibrosis
     Dosage: UNK UNK, TID  (2 MU THRICE A DAY, AS A DUAL THERAPY ALONGSIDE FOSFOMYCIN FOR 13 DAYS)
  37. COLISTIMETHATE SODIUM [Suspect]
     Active Substance: COLISTIMETHATE SODIUM
     Indication: Infection
     Dosage: UNK UNK, TID (2 MU THRICE A DAY)
     Dates: start: 20231130
  38. COLISTIMETHATE SODIUM [Suspect]
     Active Substance: COLISTIMETHATE SODIUM
     Indication: Condition aggravated
     Dosage: 2 MILLION INTERNATIONAL UNIT, TID (2 MU THRICE A DAY FOR 8 DAY)

REACTIONS (13)
  - General physical health deterioration [Unknown]
  - Malaise [Unknown]
  - Oxygen saturation decreased [Unknown]
  - Dyspnoea [Unknown]
  - Product preparation error [Unknown]
  - Underdose [Unknown]
  - Product dispensing error [Unknown]
  - Product appearance confusion [Unknown]
  - Product strength confusion [Unknown]
  - Manufacturing laboratory analytical testing issue [Unknown]
  - Weight decreased [Unknown]
  - Nutritional condition abnormal [Unknown]
  - Haemoptysis [Unknown]

NARRATIVE: CASE EVENT DATE: 20231223
